FAERS Safety Report 17948359 (Version 2)
Quarter: 2020Q3

REPORT INFORMATION
  Report Type: Spontaneous
  Country: BR (occurrence: BR)
  Receive Date: 20200626
  Receipt Date: 20200701
  Transmission Date: 20201103
  Serious: Yes (Other)
  Sender: FDA-Public Use
  Company Number: BR-PFIZER INC-2020243312

PATIENT
  Sex: Female
  Weight: 70 kg

DRUGS (3)
  1. PREDNISONE. [Concomitant]
     Active Substance: PREDNISONE
     Dosage: UNK
     Dates: start: 201809
  2. MESTINON [Concomitant]
     Active Substance: PYRIDOSTIGMINE BROMIDE
     Dosage: UNK
     Dates: start: 201809
  3. DEPO?PROVERA [Suspect]
     Active Substance: MEDROXYPROGESTERONE ACETATE
     Indication: CONTRACEPTION
     Dosage: 150 MG EVERY 90 DAYS
     Dates: start: 200101

REACTIONS (3)
  - Weight increased [Unknown]
  - Myasthenia gravis [Not Recovered/Not Resolved]
  - Spider vein [Unknown]

NARRATIVE: CASE EVENT DATE: 201809
